FAERS Safety Report 7537902-3 (Version None)
Quarter: 2011Q2

REPORT INFORMATION
  Report Type: 
  Country: None (occurrence: None)
  Receive Date: 20110609
  Receipt Date: 20110530
  Transmission Date: 20111010
  Serious: Yes (Other)
  Sender: FDA-Public Use
  Company Number: JP-UCBSA-030457

PATIENT
  Sex: Female

DRUGS (18)
  1. CHINESE MEDICINE [Concomitant]
     Route: 048
     Dates: start: 20100501
  2. BOTOX [Suspect]
     Indication: HYPERHIDROSIS
     Dosage: RECEIVED ON  30-NOV-2010
     Route: 030
     Dates: start: 20101130
  3. IPD [Concomitant]
     Indication: DERMATITIS ATOPIC
     Route: 048
     Dates: start: 20110322
  4. VALTREX [Suspect]
     Indication: HERPES VIRUS INFECTION
     Route: 048
     Dates: start: 20110117, end: 20110121
  5. CLOBETASOL PROPIONATE [Suspect]
     Indication: DERMATITIS ATOPIC
     Route: 061
     Dates: start: 20110322
  6. PROPETO [Concomitant]
     Route: 061
     Dates: start: 20100216
  7. BIOFERMIN [Concomitant]
     Route: 048
     Dates: start: 20100907, end: 20100912
  8. XYZAL [Suspect]
     Indication: DERMATITIS ATOPIC
     Route: 048
     Dates: start: 20110217
  9. ANTEBATE [Concomitant]
     Route: 061
     Dates: start: 20100216
  10. HIRUDOID [Concomitant]
     Route: 061
     Dates: start: 20100223
  11. OLOPATADINE HCL [Concomitant]
     Route: 048
     Dates: start: 20101104, end: 20110216
  12. VEEN D [Concomitant]
     Route: 041
     Dates: start: 20100901, end: 20100907
  13. VITAMEDIN [Concomitant]
     Route: 042
     Dates: start: 20100901, end: 20100907
  14. PANSPORIN [Concomitant]
     Route: 051
     Dates: start: 20100901, end: 20100907
  15. FULMETA [Concomitant]
     Route: 061
     Dates: start: 20101005
  16. KINDAVATE [Suspect]
     Indication: DERMATITIS ATOPIC
     Route: 061
     Dates: start: 20100216
  17. BOTOX PLACEBO [Suspect]
     Indication: HYPERHIDROSIS
     Route: 030
     Dates: start: 20100617
  18. SOLITA-T NO.3 [Concomitant]
     Route: 041
     Dates: start: 20100901, end: 20100907

REACTIONS (2)
  - DRUG EXPOSURE DURING PREGNANCY [None]
  - SELECTIVE ABORTION [None]
